FAERS Safety Report 6719267-X (Version None)
Quarter: 2010Q2

REPORT INFORMATION
  Report Type: 
  Country: None (occurrence: None)
  Receive Date: 20100511
  Receipt Date: 20100503
  Transmission Date: 20101027
  Serious: Yes (Hospitalization)
  Sender: FDA-Public Use
  Company Number: US-ASTRAZENECA-2010SE19916

PATIENT
  Age: 55 Year
  Sex: Male

DRUGS (6)
  1. TOPROL-XL [Suspect]
     Route: 048
     Dates: start: 20030101
  2. CRESTOR [Suspect]
     Indication: ARTERIOSCLEROSIS
     Route: 048
     Dates: start: 20090101, end: 20091101
  3. CRESTOR [Suspect]
     Route: 048
  4. ASPIRIN [Concomitant]
  5. VITAMIN TAB [Concomitant]
  6. LEVOXYL [Concomitant]

REACTIONS (3)
  - FATIGUE [None]
  - GALLBLADDER OPERATION [None]
  - MYALGIA [None]
